FAERS Safety Report 5526508-3 (Version None)
Quarter: 2007Q4

REPORT INFORMATION
  Report Type: 
  Country: None (occurrence: None)
  Receive Date: 20071121
  Receipt Date: 20071121
  Transmission Date: 20080405
  Serious: Yes (Hospitalization)
  Sender: FDA-Public Use
  Company Number: None

PATIENT
  Age: 14 Day
  Sex: Male
  Weight: 1.5 kg

DRUGS (2)
  1. IBUPROFEN LYSINE -NEOPROFEN- 20 MG/2 ML [Suspect]
     Indication: DUCTUS ARTERIOSUS PREMATURE CLOSURE
     Dosage: 7.3 MG ONCE IV; 9 MG Q24H; IV
     Route: 042
     Dates: start: 20071031, end: 20071101
  2. IBUPROFEN LYSINE -NEOPROFEN- 20 MG/2 ML [Suspect]
     Indication: DUCTUS ARTERIOSUS PREMATURE CLOSURE
     Dosage: 7.3 MG ONCE IV; 9 MG Q24H; IV
     Route: 042
     Dates: start: 20071111, end: 20071111

REACTIONS (2)
  - INTESTINAL PERFORATION [None]
  - LUNG DISORDER [None]
